FAERS Safety Report 5304523-2 (Version None)
Quarter: 2007Q2

REPORT INFORMATION
  Report Type: 
  Country: None (occurrence: None)
  Receive Date: 20070419
  Receipt Date: 20070419
  Transmission Date: 20071010
  Serious: Yes (Other)
  Sender: FDA-Public Use
  Company Number: None

PATIENT
  Age: 27 Year
  Sex: Female
  Weight: 83.4619 kg

DRUGS (1)
  1. TRI SPRINTEC TABLET BRR [Suspect]
     Indication: CONTRACEPTION
     Dosage: ONE TABLET ONCE A DAY PO
     Route: 048
     Dates: start: 20000101, end: 20070415

REACTIONS (1)
  - PREGNANCY ON ORAL CONTRACEPTIVE [None]
